FAERS Safety Report 13269457 (Version 1)
Quarter: 2017Q1

REPORT INFORMATION
  Report Type: Spontaneous
  Country: US (occurrence: US)
  Receive Date: 20170224
  Receipt Date: 20170224
  Transmission Date: 20170428
  Serious: Yes (Other)
  Sender: FDA-Public Use
  Company Number: US-LPDUSPRD-20170198

PATIENT
  Sex: Female

DRUGS (4)
  1. ONDANSETRON INJECTION (4420-01) [Suspect]
     Active Substance: ONDANSETRON
     Dosage: DOSE UNKNOWN
     Route: 065
  2. ESCITALOPRAM [Suspect]
     Active Substance: ESCITALOPRAM OXALATE
     Dosage: DOSE UNKNOWN
     Route: 065
  3. PROGESTERONE INJECTION (0750-01) [Suspect]
     Active Substance: PROGESTERONE
     Dosage: DOSE UNKNOWN
     Route: 065
  4. SERTRALINE [Suspect]
     Active Substance: SERTRALINE HYDROCHLORIDE
     Dosage: DOSE UNKNOWN
     Route: 065

REACTIONS (2)
  - Human herpesvirus 6 infection [Unknown]
  - Exposure during pregnancy [Recovered/Resolved]
